FAERS Safety Report 9231720 (Version 1)
Quarter: 2013Q2

REPORT INFORMATION
  Report Type: Spontaneous
  Country: US (occurrence: US)
  Receive Date: 20130415
  Receipt Date: 20130415
  Transmission Date: 20140414
  Serious: No
  Sender: FDA-Public Use
  Company Number: US-B.I. PHARMACEUTICALS,INC./RIDGEFIELD-2013-BI-09043BP

PATIENT
  Age: 57 Year
  Sex: Male
  Weight: 88 kg

DRUGS (1)
  1. JENTADUETO [Suspect]
     Indication: DIABETES MELLITUS
     Route: 048
     Dates: start: 20130303

REACTIONS (1)
  - Vision blurred [Not Recovered/Not Resolved]
